FAERS Safety Report 16449561 (Version 1)
Quarter: 2019Q2

REPORT INFORMATION
  Report Type: Spontaneous
  Country: US (occurrence: US)
  Receive Date: 20190509
  Receipt Date: 20190509
  Transmission Date: 20190711
  Serious: Yes (Hospitalization)
  Sender: FDA-Public Use
  Company Number: None

PATIENT
  Age: 49 Year
  Sex: Male
  Weight: 69.7 kg

DRUGS (2)
  1. NIVOLUMAB- 240MG [Suspect]
     Active Substance: NIVOLUMAB
     Indication: GASTROINTESTINAL STROMAL TUMOUR
     Route: 042
     Dates: start: 20180926, end: 20180926
  2. IPILIMUMAB 1MG/KG [Suspect]
     Active Substance: IPILIMUMAB
     Indication: GASTROINTESTINAL STROMAL TUMOUR
     Dosage: ?          OTHER FREQUENCY:Q6W;?
     Route: 042
     Dates: start: 20180926, end: 20180926

REACTIONS (4)
  - Jaundice cholestatic [None]
  - Abdominal pain upper [None]
  - Dyspnoea [None]
  - Disease progression [None]

NARRATIVE: CASE EVENT DATE: 20181006
